FAERS Safety Report 6827991-3 (Version None)
Quarter: 2010Q3

REPORT INFORMATION
  Report Type: 
  Country: None (occurrence: None)
  Receive Date: 20100709
  Receipt Date: 20100706
  Transmission Date: 20110219
  Serious: Yes (Other)
  Sender: FDA-Public Use
  Company Number: A0869133A

PATIENT
  Age: 63 Year
  Sex: Female

DRUGS (14)
  1. MELPHALAN HYDROCHLORIDE [Suspect]
     Indication: AMYLOIDOSIS
     Route: 042
     Dates: start: 20100302, end: 20100303
  2. BORTEZOMIB [Suspect]
     Indication: AMYLOIDOSIS
     Dosage: 1.3MGM2 CYCLIC
     Route: 042
     Dates: start: 20100510, end: 20100520
  3. DEXAMETHASONE [Suspect]
     Indication: AMYLOIDOSIS
     Dosage: 20MG CYCLIC
     Route: 048
     Dates: start: 20100510, end: 20100521
  4. DALTEPARIN SODIUM [Concomitant]
  5. AMIODARONE HCL [Concomitant]
  6. METOPROLOL [Concomitant]
  7. ROSUVASTATIN [Concomitant]
  8. OMEPRAZOLE [Concomitant]
  9. POLYETHYLENE GLYCOL [Concomitant]
  10. SPIRONOLACTONE [Concomitant]
  11. DOCUSATE [Concomitant]
  12. TOBRADEX [Concomitant]
  13. ACYCLOVIR [Concomitant]
  14. TORSEMIDE [Concomitant]

REACTIONS (2)
  - HYPOTENSION [None]
  - RESTRICTIVE CARDIOMYOPATHY [None]
